FAERS Safety Report 20869435 (Version 2)
Quarter: 2022Q2

REPORT INFORMATION
  Report Type: Report from Study
  Country: US (occurrence: US)
  Receive Date: 20220524
  Receipt Date: 20220615
  Transmission Date: 20220721
  Serious: Yes (Hospitalization, Other)
  Sender: FDA-Public Use
  Company Number: US-ABBVIE-22K-163-4407191-00

PATIENT
  Sex: Male

DRUGS (1)
  1. IMBRUVICA [Suspect]
     Active Substance: IBRUTINIB
     Indication: Chronic lymphocytic leukaemia
     Route: 048
     Dates: start: 20211123, end: 20220428

REACTIONS (9)
  - Kidney ablation [Unknown]
  - Weight increased [Unknown]
  - Anger [Unknown]
  - Vitamin B12 decreased [Unknown]
  - Depressed mood [Unknown]
  - Dyspepsia [Unknown]
  - Red blood cell count decreased [Unknown]
  - Atrial fibrillation [Unknown]
  - Dizziness [Unknown]
